FAERS Safety Report 5428750-9 (Version None)
Quarter: 2007Q3

REPORT INFORMATION
  Report Type: 
  Country: None (occurrence: None)
  Receive Date: 20070827
  Receipt Date: 20070827
  Transmission Date: 20080115
  Serious: Yes (Other)
  Sender: FDA-Public Use
  Company Number: None

PATIENT
  Age: 44 Year
  Sex: Male
  Weight: 88.4514 kg

DRUGS (2)
  1. TRAZODONE HCL [Suspect]
     Indication: INSOMNIA
     Dosage: 50 MG PO AT 115 8/9/07
     Route: 048
     Dates: start: 20070809
  2. TRAZODONE HCL [Suspect]
     Indication: MAJOR DEPRESSION
     Dosage: 50 MG PO AT 115 8/9/07
     Route: 048
     Dates: start: 20070809

REACTIONS (1)
  - ERECTION INCREASED [None]
